FAERS Safety Report 9664304 (Version 1)
Quarter: 2013Q4

REPORT INFORMATION
  Report Type: Report from Study
  Country: US (occurrence: US)
  Receive Date: 20131101
  Receipt Date: 20131101
  Transmission Date: 20140711
  Serious: Yes (Hospitalization)
  Sender: FDA-Public Use
  Company Number: US-ACTELION-A-US2013-90341

PATIENT
  Age: 63 Year
  Sex: Female

DRUGS (2)
  1. VELETRI [Suspect]
     Indication: PULMONARY ARTERIAL HYPERTENSION
     Dosage: 51 NG/KG, PER MIN
     Route: 042
     Dates: start: 20110822
  2. COUMADIN [Concomitant]

REACTIONS (4)
  - Abdominal cavity drainage [Unknown]
  - Catheterisation cardiac [Unknown]
  - Computerised tomogram [Unknown]
  - Fluid retention [Unknown]
